FAERS Safety Report 10794247 (Version 5)
Quarter: 2017Q4

REPORT INFORMATION
  Report Type: Spontaneous
  Country: JP (occurrence: JP)
  Receive Date: 20150213
  Receipt Date: 20171124
  Transmission Date: 20180320
  Serious: Yes (Hospitalization, Other)
  Sender: FDA-Public Use
  Company Number: JP-GILEAD-2015-0136590

PATIENT
  Age: 49 Year
  Sex: Male

DRUGS (9)
  1. REBAMIPIDE [Concomitant]
     Active Substance: REBAMIPIDE
     Dosage: 100 MG, TID
  2. KINDAVATE [Concomitant]
     Active Substance: CLOBETASONE BUTYRATE
     Dosage: UNK
     Route: 065
  3. ZEFIX [Concomitant]
     Active Substance: LAMIVUDINE
     Indication: CHRONIC HEPATITIS B
     Dosage: 100 MG, QD
     Route: 065
  4. ALESION [Concomitant]
     Active Substance: EPINASTINE HYDROCHLORIDE
     Dosage: 20 MG, QD
     Route: 065
  5. HEPSERA [Suspect]
     Active Substance: ADEFOVIR DIPIVOXIL
     Indication: CHRONIC HEPATITIS B
     Dosage: 10 MG, QD
     Route: 048
     Dates: end: 20150201
  6. TRAMCET [Concomitant]
     Active Substance: ACETAMINOPHEN\TRAMADOL
     Dosage: 3 DF, TID
  7. TRAMCET [Concomitant]
     Active Substance: ACETAMINOPHEN\TRAMADOL
     Route: 065
  8. REBAMIPIDE [Concomitant]
     Active Substance: REBAMIPIDE
     Dosage: 100 MG, TID
     Route: 065
  9. LYRICA [Concomitant]
     Active Substance: PREGABALIN
     Dosage: 75 MG, TID
     Route: 065

REACTIONS (17)
  - Bone contusion [Unknown]
  - Osteoarthritis [Unknown]
  - Meniscus injury [Unknown]
  - Spinal compression fracture [Unknown]
  - Back pain [Unknown]
  - Joint effusion [Unknown]
  - Fracture [Unknown]
  - Osteonecrosis [Unknown]
  - Osteodystrophy [Unknown]
  - Blood calcium decreased [Unknown]
  - Arthralgia [Unknown]
  - Blood alkaline phosphatase abnormal [Unknown]
  - Renal tubular acidosis [Unknown]
  - Blood uric acid decreased [Unknown]
  - Pain [Unknown]
  - Fanconi syndrome acquired [Recovering/Resolving]
  - Blood phosphorus decreased [Unknown]
